FAERS Safety Report 8610568-7 (Version None)
Quarter: 2012Q3

REPORT INFORMATION
  Report Type: 
  Country: None (occurrence: None)
  Receive Date: 20120808
  Receipt Date: 20120731
  Transmission Date: 20120928
  Serious: Yes (Hospitalization, Other)
  Sender: FDA-Public Use
  Company Number: ADR-2012-01425

PATIENT
  Sex: Male

DRUGS (3)
  1. FENTANYL [Concomitant]
  2. BUPIVACAINE HCL [Concomitant]
  3. BACLOFEN [Suspect]

REACTIONS (8)
  - DIABETES MELLITUS INADEQUATE CONTROL [None]
  - FALL [None]
  - NAUSEA [None]
  - HAEMATOCHEZIA [None]
  - DRUG WITHDRAWAL SYNDROME [None]
  - PAIN [None]
  - HYPERTENSION [None]
  - VOMITING [None]
